FAERS Safety Report 8132584-4 (Version None)
Quarter: 2012Q1

REPORT INFORMATION
  Report Type: 
  Country: None (occurrence: None)
  Receive Date: 20120213
  Receipt Date: 20120130
  Transmission Date: 20120608
  Serious: Yes (Hospitalization)
  Sender: FDA-Public Use
  Company Number: FI-CELGENEUS-055-21880-12013143

PATIENT
  Sex: Female

DRUGS (6)
  1. PRIMASPAM [Concomitant]
     Dosage: 100 MILLIGRAM
     Route: 048
  2. DIUREX MITE [Concomitant]
     Dosage: 1 TABLET
     Route: 048
  3. REVLIMID [Suspect]
     Dosage: 10 MILLIGRAM
     Route: 048
     Dates: start: 20100511
  4. METFORMIN HCL [Concomitant]
     Dosage: 1.5 GRAM
     Route: 048
  5. REVLIMID [Suspect]
     Route: 048
     Dates: start: 20100701, end: 20111207
  6. ERYTHROCYTE TRANSFUSION [Concomitant]
     Route: 065

REACTIONS (1)
  - COLON CANCER [None]
